FAERS Safety Report 9639628 (Version 1)
Quarter: 2013Q4

REPORT INFORMATION
  Report Type: Spontaneous
  Country: US (occurrence: US)
  Receive Date: 20131023
  Receipt Date: 20131023
  Transmission Date: 20140711
  Serious: No
  Sender: FDA-Public Use
  Company Number: US-BIOGENIDEC-2013BI099161

PATIENT
  Sex: 0

DRUGS (1)
  1. AVONEX [Suspect]
     Indication: MULTIPLE SCLEROSIS
     Route: 030
     Dates: start: 19981201

REACTIONS (7)
  - Irritability [Unknown]
  - Ligament sprain [Unknown]
  - Urinary tract infection [Unknown]
  - Burning sensation [Unknown]
  - Cystitis [Unknown]
  - Drug dose omission [Not Recovered/Not Resolved]
  - Pain [Unknown]
